FAERS Safety Report 7994035-X (Version None)
Quarter: 2011Q4

REPORT INFORMATION
  Report Type: 
  Country: None (occurrence: None)
  Receive Date: 20111215
  Receipt Date: 20111206
  Transmission Date: 20120403
  Serious: Yes (Hospitalization)
  Sender: FDA-Public Use
  Company Number: 2011S1001665

PATIENT
  Age: 51 Year
  Sex: Male

DRUGS (5)
  1. ASPIRIN [Concomitant]
  2. PERINDOPRIL ERBUMINE [Concomitant]
  3. NEBIVOLOL HCL [Concomitant]
  4. PLAVIX [Concomitant]
  5. LIVALO [Suspect]
     Indication: HYPERLIPIDAEMIA
     Dosage: 2 MG; 1X; PO
     Route: 048
     Dates: start: 20111109, end: 20111201

REACTIONS (4)
  - RASH [None]
  - URTICARIA [None]
  - CHEST DISCOMFORT [None]
  - MYALGIA [None]
